FAERS Safety Report 6985108-9 (Version None)
Quarter: 2010Q3

REPORT INFORMATION
  Report Type: 
  Country: None (occurrence: None)
  Receive Date: 20100915
  Receipt Date: 20100910
  Transmission Date: 20110219
  Serious: Yes (Death, Other)
  Sender: FDA-Public Use
  Company Number: PHHY2010JP59903

PATIENT
  Age: 71 Year
  Sex: Female

DRUGS (5)
  1. RASILEZ [Suspect]
     Indication: HYPERTENSION
     Dosage: 150 MG DAILY
     Route: 048
     Dates: start: 20100608
  2. PLAVIX [Suspect]
     Dosage: 75 MG DAILY
     Route: 048
  3. METOPROLOL TARTRATE [Suspect]
     Dosage: 40 MG DAILY
     Route: 048
  4. LIPITOR [Suspect]
     Dosage: 10 MG DAILY
     Route: 048
  5. ZETIA [Suspect]
     Dosage: 10 MG DAILY
     Route: 048

REACTIONS (5)
  - CARDIAC ARREST [None]
  - CARDIAC FAILURE ACUTE [None]
  - DYSPNOEA [None]
  - MALAISE [None]
  - ORTHOPNOEA [None]
